FAERS Safety Report 22294966 (Version 2)
Quarter: 2023Q2

REPORT INFORMATION
  Report Type: Spontaneous
  Country: HU (occurrence: HU)
  Receive Date: 20230508
  Receipt Date: 20230513
  Transmission Date: 20230722
  Serious: Yes (Death)
  Sender: FDA-Public Use
  Company Number: HU-AMGEN-HUNSP2023068640

PATIENT
  Age: 32 Year
  Sex: Female

DRUGS (5)
  1. LUMAKRAS [Suspect]
     Active Substance: SOTORASIB
     Indication: Cholangiocarcinoma
     Dosage: 960 MILLIGRAM, QD (120 MILLIGRAM FILM-COATED TABLET)
     Route: 065
  2. LUMAKRAS [Suspect]
     Active Substance: SOTORASIB
     Indication: K-ras gene mutation
  3. LUMAKRAS [Suspect]
     Active Substance: SOTORASIB
     Indication: Colon cancer metastatic
  4. VECTIBIX [Suspect]
     Active Substance: PANITUMUMAB
     Indication: Colon cancer metastatic
     Dosage: 20 MILLIGRAM PER MILLILITRE (INFUSION)/ 6 MILLIGRAM/KILOGRAM, Q2WK
     Route: 065
  5. VECTIBIX [Suspect]
     Active Substance: PANITUMUMAB
     Indication: K-ras gene mutation
     Dosage: 6 MG/KG, Q2WK
     Route: 065

REACTIONS (2)
  - Death [Fatal]
  - Off label use [Unknown]
